FAERS Safety Report 12517145 (Version 1)
Quarter: 2016Q2

REPORT INFORMATION
  Report Type: Spontaneous
  Country: US (occurrence: US)
  Receive Date: 20160630
  Receipt Date: 20160630
  Transmission Date: 20160815
  Serious: No
  Sender: FDA-Public Use
  Company Number: US-PFIZER INC-2016297690

PATIENT
  Age: 29 Year

DRUGS (6)
  1. NEURONTIN [Suspect]
     Active Substance: GABAPENTIN
     Dosage: UNK
  2. CEFTAZIDIME. [Suspect]
     Active Substance: CEFTAZIDIME
     Dosage: UNK
  3. NAPROSYN [Suspect]
     Active Substance: NAPROXEN
     Dosage: UNK
  4. PROGESTERONE. [Suspect]
     Active Substance: PROGESTERONE
     Dosage: UNK
  5. MASTISOL [Suspect]
     Active Substance: DEVICE
     Dosage: UNK
  6. DIPHENHYDRAMINE HCL [Suspect]
     Active Substance: DIPHENHYDRAMINE HYDROCHLORIDE
     Dosage: UNK

REACTIONS (1)
  - Drug hypersensitivity [Unknown]
